FAERS Safety Report 18997068 (Version 6)
Quarter: 2021Q3

REPORT INFORMATION
  Report Type: Spontaneous
  Country: US (occurrence: US)
  Receive Date: 20210311
  Receipt Date: 20210916
  Transmission Date: 20211014
  Serious: No
  Sender: FDA-Public Use
  Company Number: US-GLAXOSMITHKLINE-US2021AMR056819

PATIENT
  Sex: Female

DRUGS (5)
  1. ZEJULA [Suspect]
     Active Substance: NIRAPARIB
     Indication: FALLOPIAN TUBE CANCER
     Dosage: 300 MG, QD
     Route: 048
     Dates: start: 20210220
  2. ZEJULA [Suspect]
     Active Substance: NIRAPARIB
     Dosage: 300 MG, QD
     Route: 048
  3. ZEJULA [Suspect]
     Active Substance: NIRAPARIB
     Dosage: 300MG, QD
     Route: 048
  4. ZEJULA [Suspect]
     Active Substance: NIRAPARIB
     Dosage: 300 MG, QD
  5. ZEJULA [Suspect]
     Active Substance: NIRAPARIB
     Dosage: 300 MG, QD
     Route: 048

REACTIONS (19)
  - Bone pain [Not Recovered/Not Resolved]
  - Middle insomnia [Unknown]
  - Fatigue [Recovered/Resolved]
  - Gastric disorder [Unknown]
  - Adhesion [Unknown]
  - Abdominal distension [Not Recovered/Not Resolved]
  - Photosensitivity reaction [Unknown]
  - White blood cell count decreased [Not Recovered/Not Resolved]
  - Blood pressure increased [Recovered/Resolved]
  - Skin burning sensation [Unknown]
  - Myalgia [Not Recovered/Not Resolved]
  - Flatulence [Not Recovered/Not Resolved]
  - Product monitoring error [Unknown]
  - Nausea [Not Recovered/Not Resolved]
  - Red blood cell count increased [Not Recovered/Not Resolved]
  - Hypotension [Unknown]
  - Blood count abnormal [Unknown]
  - Heart rate increased [Unknown]
  - Hernia [Unknown]
